FAERS Safety Report 4956043-2 (Version None)
Quarter: 2006Q1

REPORT INFORMATION
  Report Type: 
  Country: None (occurrence: None)
  Receive Date: 20060328
  Receipt Date: 20060215
  Transmission Date: 20060701
  Serious: Yes (Death)
  Sender: FDA-Public Use
  Company Number: US-MERCK-0602USA04441

PATIENT
  Age: 62 Year
  Sex: Male
  Weight: 98 kg

DRUGS (14)
  1. VIOXX [Suspect]
     Indication: ARTHRALGIA
     Route: 048
     Dates: start: 20030625, end: 20040622
  2. DIGITEK [Concomitant]
     Route: 065
  3. HUMULIN R [Concomitant]
     Route: 065
  4. TOPROL-XL [Concomitant]
     Route: 065
  5. WARFARIN [Concomitant]
     Route: 065
  6. PROSCAR [Concomitant]
     Route: 065
  7. FLOMAX (MORNIFLUMATE) [Concomitant]
     Route: 065
  8. LISINOPRIL [Concomitant]
     Route: 065
  9. HYDROCODONE BITARTRATE [Concomitant]
     Route: 065
  10. [THERAPY UNSPECIFIED] [Concomitant]
     Route: 065
  11. ZOLOFT [Concomitant]
     Route: 065
  12. PRAVACHOL [Concomitant]
     Route: 065
  13. DIAZEPAM [Concomitant]
     Route: 065
  14. AMOXICILLIN [Concomitant]
     Route: 065

REACTIONS (6)
  - ARTERIOSCLEROSIS [None]
  - BLADDER MASS [None]
  - CARDIOMEGALY [None]
  - MYOCARDIAL INFARCTION [None]
  - PLEURAL ADHESION [None]
  - PROSTATE EXAMINATION ABNORMAL [None]
